FAERS Safety Report 22624436 (Version 1)
Quarter: 2023Q2

REPORT INFORMATION
  Report Type: Spontaneous
  Country: US (occurrence: None)
  Receive Date: 20230619
  Receipt Date: 20230619
  Transmission Date: 20230721
  Serious: No
  Sender: FDA-Public Use
  Company Number: None

PATIENT
  Sex: 0

DRUGS (1)
  1. CYCLOBENZAPRINE [Suspect]
     Active Substance: CYCLOBENZAPRINE

REACTIONS (2)
  - Hallucination [None]
  - Drug ineffective [None]
